FAERS Safety Report 7926258-X (Version None)
Quarter: 2011Q4

REPORT INFORMATION
  Report Type: 
  Country: None (occurrence: None)
  Receive Date: 20111118
  Receipt Date: 20111111
  Transmission Date: 20120403
  Serious: Yes (Hospitalization)
  Sender: FDA-Public Use
  Company Number: US-BIOGENIDEC-2010BI026781

PATIENT
  Age: 60 Year
  Sex: Male

DRUGS (3)
  1. AVONEX [Suspect]
     Indication: MULTIPLE SCLEROSIS
     Route: 030
     Dates: start: 20010120, end: 20030101
  2. AVONEX [Suspect]
     Route: 030
     Dates: start: 20101102
  3. AVONEX [Suspect]
     Route: 030
     Dates: start: 20030101, end: 20100720

REACTIONS (4)
  - GAIT DISTURBANCE [None]
  - ASTHENIA [None]
  - COLONIC POLYP [None]
  - COLORECTAL CANCER [None]
